FAERS Safety Report 7547756-7 (Version None)
Quarter: 2011Q2

REPORT INFORMATION
  Report Type: 
  Country: None (occurrence: None)
  Receive Date: 20110614
  Receipt Date: 20110601
  Transmission Date: 20111010
  Serious: Yes (Hospitalization, Other)
  Sender: FDA-Public Use
  Company Number: DE-MYLANLABS-2011S1011189

PATIENT
  Age: 27 Year
  Sex: Male
  Weight: 78 kg

DRUGS (6)
  1. PURINETHOL [Suspect]
     Route: 048
     Dates: start: 20110324, end: 20110324
  2. PURINETHOL [Suspect]
     Route: 048
     Dates: start: 20110328, end: 20110330
  3. SALOFALK /00747601/ [Concomitant]
     Indication: COLITIS ULCERATIVE
     Dosage: 1X2000 MG DAILY PER OS
     Route: 048
     Dates: start: 20100301
  4. PURINETHOL [Suspect]
     Indication: COLITIS ULCERATIVE
     Dosage: 1X2 OR 1X1 TABLET AT 50 MG DAILY PER OS, BREAKS: 17-23 AND 25-27 MAR 2011
     Route: 048
     Dates: start: 20110222, end: 20110317
  5. PREDNISOLONE [Concomitant]
     Indication: COLITIS ULCERATIVE
  6. AZATHIOPRINE [Suspect]
     Indication: COLITIS ULCERATIVE
     Dosage: 1X100 MG DAILY PER OS
     Route: 048
     Dates: start: 20101014, end: 20101028

REACTIONS (2)
  - HEPATITIS ACUTE [None]
  - PANCREATITIS ACUTE [None]
